FAERS Safety Report 18399920 (Version 2)
Quarter: 2020Q4

REPORT INFORMATION
  Report Type: Spontaneous
  Country: US (occurrence: US)
  Receive Date: 20201019
  Receipt Date: 20201020
  Transmission Date: 20210114
  Serious: No
  Sender: FDA-Public Use
  Company Number: US-PFIZER INC-2020400379

PATIENT
  Age: 30 Year
  Sex: Male

DRUGS (4)
  1. VIAGRA [Suspect]
     Active Substance: SILDENAFIL CITRATE
     Indication: ERECTILE DYSFUNCTION
     Dosage: 1 DF, AS NEEDED
     Route: 048
     Dates: start: 2020
  2. GABAPENTIN. [Concomitant]
     Active Substance: GABAPENTIN
     Indication: TORTICOLLIS
     Dosage: 300 MG, 1X/DAY
     Route: 048
  3. MOTRIN [Interacting]
     Active Substance: IBUPROFEN
     Indication: ARTHRALGIA
  4. MOTRIN [Interacting]
     Active Substance: IBUPROFEN
     Indication: SWELLING
     Dosage: UNK, AS NEEDED (TAKES UP TO 1200-1600MG)
     Route: 048

REACTIONS (3)
  - Drug interaction [Unknown]
  - Dysuria [Not Recovered/Not Resolved]
  - Loss of personal independence in daily activities [Not Recovered/Not Resolved]

NARRATIVE: CASE EVENT DATE: 2020
